FAERS Safety Report 4667638-8 (Version None)
Quarter: 2005Q2

REPORT INFORMATION
  Report Type: 
  Country: None (occurrence: None)
  Receive Date: 20050518
  Receipt Date: 20050502
  Transmission Date: 20051028
  Serious: Yes (Hospitalization)
  Sender: FDA-Public Use
  Company Number: B0335610A

PATIENT
  Age: 65 Year
  Sex: Female

DRUGS (4)
  1. PAROXETINE HCL [Suspect]
     Indication: DEPRESSION
     Dosage: 20 MG/PER DAY
     Dates: start: 19990101, end: 20031115
  2. SUMATRIPTAN SUCCINATE SUPPOSITORY (SUMATRIPTAN SUCCINATE) [Suspect]
     Indication: MIGRAINE
     Dosage: 25 MG/ PER DAY
     Dates: start: 20031114
  3. HYDROCHLOROTHIAZIDE [Concomitant]
  4. TEMAZEPAM [Concomitant]

REACTIONS (20)
  - ABNORMAL BEHAVIOUR [None]
  - AGITATION [None]
  - AMNESIA [None]
  - BLOOD PRESSURE INCREASED [None]
  - CEREBRAL ARTERY OCCLUSION [None]
  - CEREBRAL HAEMORRHAGE [None]
  - CONFUSIONAL STATE [None]
  - DRUG INTERACTION [None]
  - ENCEPHALITIS HERPES [None]
  - HEADACHE [None]
  - HYPERTHERMIA [None]
  - HYPOAESTHESIA [None]
  - LOGORRHOEA [None]
  - MIGRAINE [None]
  - NAUSEA [None]
  - PSYCHOMOTOR HYPERACTIVITY [None]
  - RESTLESSNESS [None]
  - SEROTONIN SYNDROME [None]
  - TACHYCARDIA [None]
  - VOMITING [None]
